FAERS Safety Report 26208492 (Version 1)
Quarter: 2025Q4

REPORT INFORMATION
  Report Type: Spontaneous
  Country: JP (occurrence: JP)
  Receive Date: 20251229
  Receipt Date: 20251229
  Transmission Date: 20260117
  Serious: Yes (Other)
  Sender: ELI LILLY AND COMPANY
  Company Number: JP-ELI_LILLY_AND_COMPANY-JP202512030582AA

PATIENT
  Age: 79 Year
  Sex: Male
  Weight: 64.1 kg

DRUGS (9)
  1. KISUNLA [Suspect]
     Active Substance: DONANEMAB-AZBT
     Indication: Cognitive disorder
     Dosage: 350 MG, SINGLE
     Route: 041
     Dates: start: 20251021, end: 20251021
  2. KISUNLA [Suspect]
     Active Substance: DONANEMAB-AZBT
     Dosage: 700 MG
     Route: 041
     Dates: start: 20251118, end: 20251118
  3. NORVASC [Concomitant]
     Active Substance: AMLODIPINE BESYLATE
     Indication: Hypertension
     Dosage: 2.5 MG, UNKNOWN
     Dates: start: 20250917
  4. ATORVASTATIN [Concomitant]
     Active Substance: ATORVASTATIN
     Indication: Hypercholesterolaemia
     Dosage: 10 MG, UNKNOWN
     Dates: start: 20250907, end: 20251118
  5. SOLU-MEDROL [Concomitant]
     Active Substance: METHYLPREDNISOLONE SODIUM SUCCINATE
     Indication: Anaphylactic reaction
     Dosage: 40 MG
     Route: 041
     Dates: start: 20251118, end: 20251118
  6. ATARAX P [HYDROXYZINE EMBONATE] [Concomitant]
     Indication: Anaphylactic reaction
     Dosage: 25 MG, UNKNOWN
     Route: 041
     Dates: start: 20251118, end: 20251118
  7. EPINEPHRINE [Concomitant]
     Active Substance: EPINEPHRINE
     Indication: Anaphylactic reaction
     Dosage: 0.5 ML, UNKNOWN
     Route: 030
     Dates: start: 20251118, end: 20251118
  8. OXYGEN [Concomitant]
     Active Substance: OXYGEN
     Indication: Anaphylactic reaction
     Dosage: 5 L, PER MINUTE
     Route: 045
     Dates: start: 20251118, end: 20251118
  9. ISOTONIC SODIUM CHLORIDE SOLUTION [Concomitant]
     Active Substance: SODIUM CHLORIDE
     Indication: Anaphylactic reaction
     Dosage: 500 ML
     Route: 041
     Dates: start: 20251118

REACTIONS (1)
  - Hepatitis B virus test positive [Unknown]

NARRATIVE: CASE EVENT DATE: 20251119
